FAERS Safety Report 24680417 (Version 1)
Quarter: 2024Q4

REPORT INFORMATION
  Report Type: Spontaneous
  Country: US (occurrence: US)
  Receive Date: 20241129
  Receipt Date: 20241129
  Transmission Date: 20250115
  Serious: No
  Sender: BRACCO
  Company Number: US-BRACCO-2024US05799

PATIENT
  Age: 74 Year
  Sex: Male

DRUGS (6)
  1. LUMASON [Suspect]
     Active Substance: SULFUR HEXAFLUORIDE
     Indication: Echocardiogram
     Dosage: 2 ML
     Dates: start: 20240915, end: 20240915
  2. LUMASON [Suspect]
     Active Substance: SULFUR HEXAFLUORIDE
     Indication: Echocardiogram
     Dosage: 2 ML
     Dates: start: 20240915, end: 20240915
  3. LUMASON [Suspect]
     Active Substance: SULFUR HEXAFLUORIDE
     Indication: Echocardiogram
     Dosage: 2 ML
     Dates: start: 20240915, end: 20240915
  4. ELIQUIS [Concomitant]
     Active Substance: APIXABAN
  5. LIPITOR [Concomitant]
     Active Substance: ATORVASTATIN CALCIUM
  6. PEPCID [Concomitant]
     Active Substance: FAMOTIDINE

REACTIONS (2)
  - Tremor [Recovered/Resolved]
  - Hypersensitivity [Recovered/Resolved]

NARRATIVE: CASE EVENT DATE: 20240915
